FAERS Safety Report 8812575 (Version 2)
Quarter: 2013Q1

REPORT INFORMATION
  Report Type: Report from Study
  Country: JP (occurrence: JP)
  Receive Date: 20120927
  Receipt Date: 20130215
  Transmission Date: 20140127
  Serious: Yes (Other)
  Sender: FDA-Public Use
  Company Number: JP-VERTEX PHARMACEUTICAL INC.-AE-2012-007236

PATIENT
  Age: 66 Year
  Sex: Female

DRUGS (27)
  1. VX-950 (TELAPREVIR) [Suspect]
     Indication: CHRONIC HEPATITIS C
     Dosage: 1500 MG, QD
     Route: 048
     Dates: start: 20120312, end: 20120430
  2. VX-950 (TELAPREVIR) [Suspect]
     Dosage: 750 MG, QD
     Route: 048
     Dates: start: 20120501, end: 20120527
  3. REBETOL [Suspect]
     Indication: CHRONIC HEPATITIS C
     Dosage: 400 MG, QD
     Route: 048
     Dates: start: 20120312, end: 20120415
  4. REBETOL [Suspect]
     Dosage: 200 MG, QD
     Route: 048
     Dates: start: 20120416, end: 20120716
  5. REBETOL [Suspect]
     Dosage: 400 MG, QD
     Route: 048
     Dates: start: 20120717, end: 20120826
  6. PEGINTRON [Suspect]
     Indication: CHRONIC HEPATITIS C
     Dosage: 1.5 ?G/KG, QW
     Route: 058
     Dates: start: 20120312, end: 20120501
  7. PEGINTRON [Suspect]
     Dosage: 1.1 ?G/KG, QW
     Route: 058
     Dates: start: 20120507, end: 20120821
  8. DEPAS [Concomitant]
     Dosage: UNK, PRN
     Route: 048
  9. ASPARA-CA [Concomitant]
     Dosage: 400 MG, QD
     Route: 048
  10. REBAMIPIDE [Concomitant]
     Dosage: 300 MG, QD
     Route: 048
  11. ACTONEL [Concomitant]
     Dosage: 17.5 MG, QW
     Route: 048
  12. FLUOROMETHOLONE [Concomitant]
     Dosage: 4 GTT, QD
     Route: 047
     Dates: start: 20120315, end: 20120327
  13. FLUOROMETHOLONE [Concomitant]
     Dosage: 4 GTT, QD
     Route: 047
     Dates: start: 20120507, end: 20120517
  14. MAGLAX [Concomitant]
     Dosage: 750 MG, QD
     Route: 048
     Dates: start: 20120316, end: 20120331
  15. MAGLAX [Concomitant]
     Dosage: 990 MG, QD
     Route: 048
     Dates: start: 20120709, end: 20120902
  16. SP TROCHES [Concomitant]
     Dosage: 1 DF, PRN
     Route: 048
     Dates: start: 20120416
  17. MAALOX [Concomitant]
     Dosage: 3 DF, QD
     Route: 048
     Dates: start: 20120416, end: 20120430
  18. MAALOX [Concomitant]
     Dosage: 2 DF, QD
     Route: 048
     Dates: start: 20120501, end: 20120513
  19. URSO [Concomitant]
     Dosage: 300 MG, QD
     Route: 048
     Dates: end: 20120321
  20. URSO [Concomitant]
     Dosage: 100 MG, QD
     Route: 048
     Dates: start: 20120322, end: 20120401
  21. BIO-THREE [Concomitant]
     Dosage: 3 DF, QD
     Route: 048
     Dates: start: 20120501
  22. TAKEPRON [Concomitant]
     Dosage: 15 MG, QD
     Route: 048
     Dates: start: 20120514
  23. MYSLEE [Concomitant]
     Dosage: 10 MG, QD
     Route: 048
     Dates: start: 20120604, end: 20120826
  24. SOLANAX [Concomitant]
     Dosage: 1.2 MG, QD
     Route: 048
     Dates: start: 20120618
  25. MUCODYNE [Concomitant]
     Dosage: 1500 MG, QD
     Route: 048
     Dates: start: 20120827
  26. ETICALM [Concomitant]
     Dosage: 1.5 MG, QD
     Route: 048
     Dates: start: 20120827
  27. MEDICON [Concomitant]
     Dosage: 45 MG, QD
     Route: 048
     Dates: start: 20120827

REACTIONS (2)
  - Erythema multiforme [Recovered/Resolved]
  - White blood cell count decreased [Recovered/Resolved]
